FAERS Safety Report 11225009 (Version 3)
Quarter: 2015Q3

REPORT INFORMATION
  Report Type: Spontaneous
  Country: US (occurrence: None)
  Receive Date: 20150625
  Receipt Date: 20150803
  Transmission Date: 20151125
  Serious: Yes (Hospitalization, Other)
  Sender: FDA-Public Use
  Company Number: ADR-2015-01058

PATIENT
  Age: 29 Year
  Sex: Male

DRUGS (16)
  1. ZANTAC [Suspect]
     Active Substance: RANITIDINE HYDROCHLORIDE
     Dosage: BY GASTRIC TUBE
  2. VALIUM [Suspect]
     Active Substance: DIAZEPAM
     Dosage: (7.5 MG BY GASTRIC TUBE
  3. LIORESAL [Suspect]
     Active Substance: BACLOFEN
     Indication: MUSCLE SPASTICITY
     Dates: start: 20150425
  4. BENADRYL [Suspect]
     Active Substance: DIPHENHYDRAMINE HYDROCHLORIDE
     Indication: MULTIPLE ALLERGIES
     Dosage: 25 MG BY GASTRIC TUBE
  5. NYSTATIN. [Suspect]
     Active Substance: NYSTATIN
     Route: 061
  6. EFFEXOR [Suspect]
     Active Substance: VENLAFAXINE HYDROCHLORIDE
  7. ZYPREXA [Suspect]
     Active Substance: OLANZAPINE
     Dosage: BY GASTRIC TUBE, AT BEDTIME
  8. FLEET [Suspect]
     Active Substance: BISACODYL\GLYCERIN\MINERAL OIL\SODIUM PHOSPHATE, DIBASIC\SODIUM PHOSPHATE, MONOBASIC
     Indication: ENEMA ADMINISTRATION
     Dosage: INSERT 1 ENEMA RECTALLY EVERY 48 HOURS AS NEEDED
  9. TEGRETOL [Suspect]
     Active Substance: CARBAMAZEPINE
     Dosage: 300 MG BY GASTRIC TUBE
  10. OXYCODONE [Suspect]
     Active Substance: OXYCODONE
     Dosage: 7.5 ML BY GASTRIC TUBE EVERY 5 HOURS AS NEEDED
     Dates: start: 20150425
  11. MIRALAX [Suspect]
     Active Substance: POLYETHYLENE GLYCOL 3350
     Dosage: BY GASTRIC TUBE
     Route: 048
  12. MESTINON [Suspect]
     Active Substance: PYRIDOSTIGMINE BROMIDE
     Dosage: BY GASTRIC TUBE ROUTE 3 TIMES A DAY
  13. LIORESAL [Suspect]
     Active Substance: BACLOFEN
     Dosage: 1 TAB BY GASTRIC TUBE AS NEEDED
     Dates: start: 20150425
  14. TYLENOL [Suspect]
     Active Substance: ACETAMINOPHEN
     Dosage: GASTRIC TUBE
  15. DUONEB [Suspect]
     Active Substance: ALBUTEROL SULFATE\IPRATROPIUM BROMIDE
     Dosage: TAKE 3 ML BY NEBULIZER EVERY 4 HOURS AS NEEDED.
  16. BACTROBAN [Suspect]
     Active Substance: MUPIROCIN\MUPIROCIN CALCIUM
     Indication: CATHETER SITE ERYTHEMA
     Dosage: AS NEEDED FOR REDNESS
     Route: 061

REACTIONS (9)
  - Incision site swelling [None]
  - Pneumonia [None]
  - Urinary tract infection [None]
  - Incision site haemorrhage [None]
  - Incision site erythema [None]
  - Implant site extravasation [None]
  - Pyrexia [None]
  - Constipation [None]
  - Implant site cellulitis [None]

NARRATIVE: CASE EVENT DATE: 20150501
